FAERS Safety Report 24287966 (Version 1)
Quarter: 2024Q3

REPORT INFORMATION
  Report Type: Spontaneous
  Country: AU (occurrence: AU)
  Receive Date: 20240905
  Receipt Date: 20240905
  Transmission Date: 20241016
  Serious: Yes (Other)
  Sender: PERRIGO
  Company Number: None

PATIENT
  Age: 53 Year
  Sex: Female

DRUGS (2)
  1. ACETAMINOPHEN [Suspect]
     Active Substance: ACETAMINOPHEN
     Indication: Product used for unknown indication
     Dosage: UNK
     Route: 065
  2. ACETAMINOPHEN [Suspect]
     Active Substance: ACETAMINOPHEN
     Dosage: 4 G, QD
     Route: 065

REACTIONS (5)
  - Abdominal pain upper [Recovered/Resolved]
  - Drug-induced liver injury [Recovered/Resolved]
  - Enzyme abnormality [Recovered/Resolved]
  - Hepatomegaly [Recovered/Resolved]
  - Nausea [Recovered/Resolved]
